FAERS Safety Report 5119754-4 (Version None)
Quarter: 2006Q4

REPORT INFORMATION
  Report Type: 
  Country: None (occurrence: None)
  Receive Date: 20061003
  Receipt Date: 20060927
  Transmission Date: 20070319
  Serious: Yes (Other)
  Sender: FDA-Public Use
  Company Number: US-JNJFOC-20060906699

PATIENT
  Sex: Female

DRUGS (3)
  1. TYLENOL [Suspect]
     Indication: PAIN
  2. TYLENOL [Suspect]
     Indication: PYREXIA
  3. ZOCOR [Interacting]
     Indication: BLOOD CHOLESTEROL ABNORMAL

REACTIONS (2)
  - BLOOD TRIGLYCERIDES INCREASED [None]
  - DRUG INTERACTION [None]
